FAERS Safety Report 8437579-9 (Version None)
Quarter: 2012Q2

REPORT INFORMATION
  Report Type: 
  Country: None (occurrence: None)
  Receive Date: 20120614
  Receipt Date: 20120411
  Transmission Date: 20120825
  Serious: No
  Sender: FDA-Public Use
  Company Number: US-AMGEN-USASP2012023192

PATIENT
  Age: 74 Year
  Sex: Female

DRUGS (9)
  1. VITAMIN D [Concomitant]
     Dosage: 5000 IU, QD
     Dates: start: 20120101
  2. SIMVASTATIN [Concomitant]
     Dosage: 1 MG, QD
  3. CALCIUM [Concomitant]
     Dosage: 1000 MG, QD
  4. MULTI-VITAMIN [Concomitant]
     Dosage: UNK UNK, QD
  5. CALCIUM [Concomitant]
     Dosage: 725 MG, QD
     Dates: start: 20120101
  6. COQ10 [Concomitant]
     Dosage: UNK UNK, QD
  7. PROLIA [Suspect]
     Indication: OSTEOPOROSIS POSTMENOPAUSAL
     Dosage: 60 MG, Q6MO
     Dates: start: 20111011
  8. HYDROCHLOROTHIAZIDE [Concomitant]
     Dosage: UNK UNK, QD
     Dates: end: 20120101
  9. VITAMIN D [Concomitant]
     Dosage: 2000 IU, QD

REACTIONS (1)
  - GINGIVAL BLISTER [None]
